FAERS Safety Report 8098134-6 (Version None)
Quarter: 2012Q1

REPORT INFORMATION
  Report Type: 
  Country: None (occurrence: None)
  Receive Date: 20120128
  Receipt Date: 20110817
  Transmission Date: 20120608
  Serious: No
  Sender: FDA-Public Use
  Company Number: US-ABBOTT-11P-163-0847492-00

PATIENT
  Sex: Female

DRUGS (15)
  1. HUMIRA [Suspect]
     Indication: RHEUMATOID ARTHRITIS
     Dates: start: 20110701
  2. ASCORBIC ACID [Concomitant]
     Indication: PRODUCT USED FOR UNKNOWN INDICATION
  3. ACTOS [Concomitant]
     Indication: DIABETES MELLITUS
  4. AMARYL [Concomitant]
     Indication: DIABETES MELLITUS
  5. MAXZIDE [Concomitant]
     Indication: HYPERTENSION
  6. IRON [Concomitant]
     Indication: MINERAL SUPPLEMENTATION
  7. SYNTHROID [Concomitant]
     Indication: HYPOTHYROIDISM
  8. ZOLOFT [Concomitant]
     Indication: DEPRESSION
  9. SIMVASTATIN [Concomitant]
     Indication: BLOOD CHOLESTEROL INCREASED
  10. NEURONTIN [Concomitant]
     Indication: PRODUCT USED FOR UNKNOWN INDICATION
  11. MULTI-VITAMINS [Concomitant]
     Indication: VITAMIN SUPPLEMENTATION
  12. ATENOLOL [Concomitant]
     Indication: HYPERTENSION
  13. PLAQUENIL [Concomitant]
     Indication: RHEUMATOID ARTHRITIS
  14. CALCIUM [Concomitant]
     Indication: MINERAL SUPPLEMENTATION
  15. VITAMIN D [Concomitant]
     Indication: VITAMIN SUPPLEMENTATION

REACTIONS (1)
  - FATIGUE [None]
